FAERS Safety Report 11962316 (Version 1)
Quarter: 2016Q1

REPORT INFORMATION
  Report Type: Spontaneous
  Country: US (occurrence: US)
  Receive Date: 20160126
  Receipt Date: 20160126
  Transmission Date: 20160526
  Serious: Yes (Death, Other)
  Sender: FDA-Public Use
  Company Number: US-ACTAVIS-2016-01330

PATIENT
  Age: 28 Year
  Sex: Male

DRUGS (3)
  1. METOCLOPRAMIDE (WATSON LABORATORIES) [Suspect]
     Active Substance: METOCLOPRAMIDE HYDROCHLORIDE
     Indication: VOMITING
  2. METOCLOPRAMIDE (WATSON LABORATORIES) [Suspect]
     Active Substance: METOCLOPRAMIDE HYDROCHLORIDE
     Indication: NAUSEA
     Dosage: 45 MG, BID
     Route: 042
  3. CYTARABINE (UNKNOWN) [Suspect]
     Active Substance: CYTARABINE
     Indication: ACUTE PROMYELOCYTIC LEUKAEMIA
     Dosage: 6.5 G, BID
     Route: 042

REACTIONS (10)
  - Hepatorenal syndrome [Not Recovered/Not Resolved]
  - Extrapyramidal disorder [Recovered/Resolved]
  - Nausea [Unknown]
  - Cardiac arrest [Fatal]
  - Acute kidney injury [Not Recovered/Not Resolved]
  - Pyrexia [Unknown]
  - Diarrhoea haemorrhagic [Unknown]
  - Hepatic encephalopathy [Not Recovered/Not Resolved]
  - Hyperbilirubinaemia [Not Recovered/Not Resolved]
  - Vomiting [Unknown]
